FAERS Safety Report 24767630 (Version 1)
Quarter: 2024Q4

REPORT INFORMATION
  Report Type: Spontaneous
  Country: US (occurrence: None)
  Receive Date: 20241223
  Receipt Date: 20241223
  Transmission Date: 20250114
  Serious: Yes (Life-Threatening)
  Sender: Public
  Company Number: None

PATIENT
  Age: 53 Year
  Sex: Male

DRUGS (1)
  1. TERIFLUNOMIDE [Suspect]
     Active Substance: TERIFLUNOMIDE
     Indication: Multiple sclerosis
     Dosage: FREQUENCY : DAILY;?

REACTIONS (5)
  - Migraine [None]
  - Paraesthesia [None]
  - Fall [None]
  - Foot fracture [None]
  - Pulmonary embolism [None]

NARRATIVE: CASE EVENT DATE: 20240921
